FAERS Safety Report 13068731 (Version 1)
Quarter: 2016Q4

REPORT INFORMATION
  Report Type: Spontaneous
  Country: US (occurrence: US)
  Receive Date: 20161228
  Receipt Date: 20161228
  Transmission Date: 20170207
  Serious: No
  Sender: FDA-Public Use
  Company Number: US-CELGENEUS-USA-2016126967

PATIENT
  Sex: Male
  Weight: 63.56 kg

DRUGS (1)
  1. REVLIMID [Suspect]
     Active Substance: LENALIDOMIDE
     Indication: PLASMA CELL MYELOMA
     Dosage: 18.75 MILLIGRAM
     Route: 048
     Dates: start: 20161202

REACTIONS (7)
  - Insomnia [Unknown]
  - Nasopharyngitis [Unknown]
  - Asthenia [Unknown]
  - Vision blurred [Unknown]
  - Productive cough [Unknown]
  - Abdominal pain lower [Unknown]
  - Muscle spasms [Unknown]
